FAERS Safety Report 5408713-X (Version None)
Quarter: 2007Q3

REPORT INFORMATION
  Report Type: 
  Country: None (occurrence: None)
  Receive Date: 20070808
  Receipt Date: 20070801
  Transmission Date: 20080115
  Serious: Yes (Hospitalization)
  Sender: FDA-Public Use
  Company Number: A0668186A

PATIENT
  Age: 62 Year
  Sex: Male

DRUGS (23)
  1. COREG [Suspect]
     Indication: DRUG USE FOR UNKNOWN INDICATION
     Route: 065
  2. STUDY DRUG (UNSPECIFIED) [Suspect]
     Indication: DRUG USE FOR UNKNOWN INDICATION
  3. PIOGLITAZONE [Concomitant]
  4. EXENATIDE [Concomitant]
  5. INSULIN GLARGINE [Concomitant]
  6. INSULIN LISPRO [Concomitant]
  7. GABAPENTIN [Concomitant]
  8. ATORVASTATIN CALCIUM [Concomitant]
  9. ISOSORBIDE DINITRATE [Concomitant]
  10. AMITRIPTYLINE HCL [Concomitant]
  11. CLOPIDOGREL [Concomitant]
  12. FUROSEMIDE [Concomitant]
  13. ATROPINE SULPHATE + DIPHENOXYLATE HYDROCHLORIDE [Concomitant]
  14. NAHCO3 [Concomitant]
  15. ASCORBIC ACID [Concomitant]
  16. MAGNESIUM SULFATE [Concomitant]
  17. HEPARIN [Concomitant]
  18. FOLIC ACID [Concomitant]
  19. PYRIDOXINE HCL [Concomitant]
  20. HYDROXYCARBAMIDE [Concomitant]
  21. VITAMIN B [Concomitant]
  22. LIDOCAINE [Concomitant]
  23. BENAZEPRIL HYDROCHLORIDE [Concomitant]

REACTIONS (3)
  - FALL [None]
  - LOWER LIMB FRACTURE [None]
  - ORTHOSTATIC HYPOTENSION [None]
